FAERS Safety Report 26164101 (Version 1)
Quarter: 2025Q4

REPORT INFORMATION
  Report Type: Report from Study
  Country: US (occurrence: US)
  Receive Date: 20251216
  Receipt Date: 20251216
  Transmission Date: 20260118
  Serious: No
  Sender: MALLINCKRODT
  Company Number: US-MALLINCKRODT-MNK202507825

PATIENT
  Sex: Male

DRUGS (5)
  1. CORTICOTROPIN [Suspect]
     Active Substance: CORTICOTROPIN
     Indication: Nephritic syndrome
     Dosage: UNKNOWN
  2. CORTICOTROPIN [Suspect]
     Active Substance: CORTICOTROPIN
     Indication: Focal segmental glomerulosclerosis
  3. CORTICOTROPIN [Suspect]
     Active Substance: CORTICOTROPIN
     Indication: Nephritic syndrome
  4. CORTICOTROPIN [Suspect]
     Active Substance: CORTICOTROPIN
     Indication: Focal segmental glomerulosclerosis
  5. MOUNJARO [Concomitant]
     Active Substance: TIRZEPATIDE
     Dosage: UNKNOWN

REACTIONS (1)
  - Therapeutic product effect incomplete [Recovering/Resolving]
